FAERS Safety Report 15904803 (Version 1)
Quarter: 2019Q1

REPORT INFORMATION
  Report Type: Spontaneous
  Country: US (occurrence: US)
  Receive Date: 20190204
  Receipt Date: 20190204
  Transmission Date: 20190417
  Serious: No
  Sender: FDA-Public Use
  Company Number: US-AMGEN-USASP2019014784

PATIENT
  Sex: Female
  Weight: 68.4 kg

DRUGS (1)
  1. ENBREL [Suspect]
     Active Substance: ETANERCEPT
     Indication: RHEUMATOID ARTHRITIS
     Dosage: 50 MG, QWK
     Route: 065
     Dates: end: 2018

REACTIONS (4)
  - Pain in extremity [Recovered/Resolved]
  - Swelling [Recovering/Resolving]
  - Drug effect decreased [Unknown]
  - Hand deformity [Unknown]

NARRATIVE: CASE EVENT DATE: 2018
